FAERS Safety Report 4705535-X (Version None)
Quarter: 2005Q3

REPORT INFORMATION
  Report Type: 
  Country: None (occurrence: None)
  Receive Date: 20050701
  Receipt Date: 20050624
  Transmission Date: 20060218
  Serious: Yes (Hospitalization)
  Sender: FDA-Public Use
  Company Number: US-ABBOTT-05P-163-0304060-00

PATIENT
  Sex: Female
  Weight: 69.008 kg

DRUGS (6)
  1. HUMIRA [Suspect]
     Indication: RHEUMATOID ARTHRITIS
     Route: 058
     Dates: start: 20010301, end: 20050425
  2. HUMIRA [Suspect]
     Route: 058
     Dates: start: 20050613
  3. ADVICOR [Concomitant]
     Indication: BLOOD CHOLESTEROL INCREASED
     Route: 048
  4. TRAZODONE [Concomitant]
     Indication: SLEEP DISORDER
     Route: 048
  5. CLONAZEPAM [Concomitant]
     Indication: STRESS
     Route: 048
  6. ESOMEPRAZOLE [Concomitant]
     Indication: PROPHYLAXIS AGAINST GASTROINTESTINAL ULCER
     Route: 048

REACTIONS (3)
  - CLOSTRIDIAL INFECTION [None]
  - DIARRHOEA [None]
  - SPINAL FUSION SURGERY [None]
